FAERS Safety Report 11254461 (Version 1)
Quarter: 2015Q3

REPORT INFORMATION
  Report Type: Spontaneous
  Country: US (occurrence: None)
  Receive Date: 20150708
  Receipt Date: 20150708
  Transmission Date: 20151125
  Serious: Yes (Life-Threatening)
  Sender: FDA-Public Use
  Company Number: None

PATIENT
  Age: 5 Month
  Sex: Male
  Weight: 7.2 kg

DRUGS (3)
  1. SEVOFLURANE. [Suspect]
     Active Substance: SEVOFLURANE
     Indication: ANAESTHESIA
     Dates: start: 20130415
  2. CAUDAL BLOCK [Concomitant]
  3. PROPOFOL. [Concomitant]
     Active Substance: PROPOFOL

REACTIONS (5)
  - Hypotension [None]
  - Heart rate decreased [None]
  - Cardiac arrest [None]
  - Arrhythmia [None]
  - Tachycardia [None]

NARRATIVE: CASE EVENT DATE: 20140215
